FAERS Safety Report 14665127 (Version 1)
Quarter: 2018Q1

REPORT INFORMATION
  Report Type: Spontaneous
  Country: US (occurrence: US)
  Receive Date: 20180320
  Receipt Date: 20180320
  Transmission Date: 20180509
  Serious: Yes (Disabling)
  Sender: FDA-Public Use
  Company Number: None

PATIENT
  Age: 58 Year
  Sex: Female
  Weight: 58.05 kg

DRUGS (1)
  1. SECRET OUTLAST [Suspect]
     Active Substance: ALUMINUM ZIRCONIUM TETRACHLOROHYDREX GLY
     Indication: THERAPEUTIC SKIN CARE TOPICAL
     Dosage: QUANTITY:1 2.6 OZ.;?
     Route: 061
     Dates: start: 20180201, end: 20180310

REACTIONS (3)
  - Breast pain [None]
  - Application site swelling [None]
  - Application site pain [None]

NARRATIVE: CASE EVENT DATE: 20180224
